FAERS Safety Report 8558518 (Version 2)
Quarter: 2013Q1

REPORT INFORMATION
  Report Type: Spontaneous
  Country: US (occurrence: US)
  Receive Date: 20120511
  Receipt Date: 20130321
  Transmission Date: 20140127
  Serious: Yes (Other)
  Sender: FDA-Public Use
  Company Number: US-ROCHE-782666

PATIENT
  Age: 23 None
  Sex: Female
  Weight: 47.67 kg

DRUGS (4)
  1. ACCUTANE [Suspect]
     Indication: ACNE
     Route: 065
     Dates: start: 200112, end: 2002
  2. ACCUTANE [Suspect]
     Dosage: 2 ND COURSE
     Route: 065
     Dates: start: 200305, end: 200307
  3. AMNESTEEM [Suspect]
     Indication: ACNE
     Route: 065
     Dates: start: 2003, end: 2003
  4. ORTHO TRI CYCLEN [Concomitant]
     Indication: CONTRACEPTION

REACTIONS (6)
  - Inflammatory bowel disease [Unknown]
  - Colitis ulcerative [Unknown]
  - Stress [Unknown]
  - Haemorrhoids [Unknown]
  - Arthritis [Unknown]
  - Dry skin [Unknown]
